FAERS Safety Report 5328823-5 (Version None)
Quarter: 2007Q2

REPORT INFORMATION
  Report Type: 
  Country: None (occurrence: None)
  Receive Date: 20070518
  Receipt Date: 20070516
  Transmission Date: 20071010
  Serious: Yes (Other)
  Sender: FDA-Public Use
  Company Number: CN-BRISTOL-MYERS SQUIBB COMPANY-13782495

PATIENT
  Age: 53 Year
  Sex: Female

DRUGS (1)
  1. MITOMYCIN-C BULK POWDER [Suspect]

REACTIONS (1)
  - MASS [None]
